FAERS Safety Report 25701063 (Version 1)
Quarter: 2025Q3

REPORT INFORMATION
  Report Type: Report from Study
  Country: US (occurrence: US)
  Receive Date: 20250819
  Receipt Date: 20250819
  Transmission Date: 20251020
  Serious: Yes (Other)
  Sender: IMMUNOCORE
  Company Number: US-IMMUNOCORE, LTD-2025-IMC-004551

PATIENT
  Age: 74 Year
  Sex: Female

DRUGS (1)
  1. KIMMTRAK [Suspect]
     Active Substance: TEBENTAFUSP-TEBN
     Indication: Metastatic ocular melanoma

REACTIONS (3)
  - Neuropathy peripheral [Unknown]
  - Pigmentation disorder [Unknown]
  - Eyelash discolouration [Unknown]

NARRATIVE: CASE EVENT DATE: 20250807
